FAERS Safety Report 4374299-4 (Version None)
Quarter: 2004Q2

REPORT INFORMATION
  Report Type: 
  Country: None (occurrence: None)
  Receive Date: 20040608
  Receipt Date: 20040608
  Transmission Date: 20050107
  Serious: Yes (Hospitalization)
  Sender: FDA-Public Use
  Company Number: None

PATIENT
  Age: 62 Year
  Sex: Male
  Weight: 89.8122 kg

DRUGS (8)
  1. CELEBREX [Suspect]
     Dosage: 400 MG BID ORAL
     Route: 048
     Dates: start: 20040301, end: 20040520
  2. METHOCARBAMOL [Concomitant]
  3. GABAPENTIN [Concomitant]
  4. DOCUSATE NA [Concomitant]
  5. ALPRAZOLAM [Concomitant]
  6. SENNA [Concomitant]
  7. RANITIDINE HCL [Concomitant]
  8. PROPOXPHENE N 100 + APAP [Concomitant]

REACTIONS (3)
  - AXILLARY VEIN THROMBOSIS [None]
  - PHLEBOTHROMBOSIS [None]
  - SUBCLAVIAN VEIN THROMBOSIS [None]
